FAERS Safety Report 7715534-1 (Version None)
Quarter: 2011Q3

REPORT INFORMATION
  Report Type: 
  Country: None (occurrence: None)
  Receive Date: 20110822
  Receipt Date: 20110208
  Transmission Date: 20111222
  Serious: Yes (Other)
  Sender: FDA-Public Use
  Company Number: AUR-APL-2011-00418

PATIENT
  Sex: Female

DRUGS (2)
  1. CITALOPRAM HYDROBROMIDE [Suspect]
     Indication: PRODUCT USED FOR UNKNOWN INDICATION
     Dosage: (10 MG),
  2. SAGE COMPLEX [Concomitant]

REACTIONS (8)
  - TREMOR [None]
  - NAUSEA [None]
  - WRONG TECHNIQUE IN DRUG USAGE PROCESS [None]
  - VISUAL IMPAIRMENT [None]
  - SOMNOLENCE [None]
  - VOMITING [None]
  - FATIGUE [None]
  - DECREASED APPETITE [None]
